FAERS Safety Report 8233404-X (Version None)
Quarter: 2012Q1

REPORT INFORMATION
  Report Type: 
  Country: None (occurrence: None)
  Receive Date: 20120326
  Receipt Date: 20120312
  Transmission Date: 20120608
  Serious: Yes (Death)
  Sender: FDA-Public Use
  Company Number: US-SANOFI-AVENTIS-2012SA017098

PATIENT
  Age: 49 Year
  Sex: Male
  Weight: 86.6 kg

DRUGS (3)
  1. NOVORAPID [Suspect]
     Dosage: DOSE:178 UNIT(S)
     Route: 058
     Dates: start: 20090916, end: 20100816
  2. LANTUS [Suspect]
     Dosage: DOSE:105 UNIT(S)
     Route: 058
     Dates: start: 20090916, end: 20100816
  3. ENALAPRIL MALEATE [Concomitant]
     Dates: start: 20050301

REACTIONS (1)
  - MYOCARDIAL INFARCTION [None]
